FAERS Safety Report 6004987-5 (Version None)
Quarter: 2008Q4

REPORT INFORMATION
  Report Type: 
  Country: None (occurrence: None)
  Receive Date: 20081216
  Receipt Date: 20081201
  Transmission Date: 20090506
  Serious: Yes (Hospitalization, Other)
  Sender: FDA-Public Use
  Company Number: JP-GENENTECH-269049

PATIENT
  Sex: Male

DRUGS (13)
  1. AVASTIN [Suspect]
     Indication: COLON CANCER
  2. KYTRIL [Concomitant]
     Indication: DRUG USE FOR UNKNOWN INDICATION
     Dosage: UNK
     Dates: start: 20071113
  3. MUCOSTA [Concomitant]
     Indication: DRUG USE FOR UNKNOWN INDICATION
     Dosage: UNK
     Dates: start: 20080819, end: 20080819
  4. ASPIRIN [Concomitant]
     Indication: DRUG USE FOR UNKNOWN INDICATION
     Dosage: UNK
  5. BUFFERIN (UNITED STATES) [Concomitant]
     Indication: DRUG USE FOR UNKNOWN INDICATION
  6. FLUOROURACIL [Suspect]
     Indication: COLON CANCER RECURRENT
     Dosage: 700 MG, QD
     Route: 042
     Dates: start: 20070703
  7. LEUCOVORIN CALCIUM [Suspect]
     Indication: COLON CANCER RECURRENT
     Dosage: 350 MG, QD
     Route: 042
     Dates: start: 20070703
  8. ELPLAT [Suspect]
     Indication: COLON CANCER RECURRENT
     Dosage: 120 MG, QD
     Route: 042
     Dates: start: 20071113
  9. MEDICATION (UNK INGREDIENT) [Suspect]
     Indication: DRUG USE FOR UNKNOWN INDICATION
     Dosage: UNK
     Dates: start: 20080818, end: 20080818
  10. LOXONIN [Suspect]
     Indication: BACK PAIN
     Dosage: UNK
     Dates: start: 20080819, end: 20080819
  11. SEROTONE [Concomitant]
     Indication: DRUG USE FOR UNKNOWN INDICATION
     Dosage: UNK
     Dates: start: 20070703, end: 20071012
  12. DECADRON [Concomitant]
     Indication: DRUG USE FOR UNKNOWN INDICATION
     Dosage: UNK
     Dates: start: 20070703
  13. ZOFRAN [Concomitant]
     Indication: DRUG USE FOR UNKNOWN INDICATION
     Dosage: UNK
     Dates: start: 20071113, end: 20080115

REACTIONS (12)
  - BLOOD PRESSURE DECREASED [None]
  - DISEASE PROGRESSION [None]
  - DIZZINESS [None]
  - GASTRITIS HAEMORRHAGIC [None]
  - HYPERSENSITIVITY [None]
  - LOSS OF CONSCIOUSNESS [None]
  - MYDRIASIS [None]
  - NASOPHARYNGITIS [None]
  - NEUTROPHIL COUNT DECREASED [None]
  - PLATELET COUNT DECREASED [None]
  - REACTION TO DRUG EXCIPIENTS [None]
  - VARICES OESOPHAGEAL [None]
